FAERS Safety Report 20735647 (Version 5)
Quarter: 2022Q2

REPORT INFORMATION
  Report Type: Spontaneous
  Country: CA (occurrence: CA)
  Receive Date: 20220421
  Receipt Date: 20220512
  Transmission Date: 20220721
  Serious: Yes (Hospitalization, Other)
  Sender: FDA-Public Use
  Company Number: CA-UNITED THERAPEUTICS-UNT-2022-005852

PATIENT
  Age: 61 Year
  Sex: Female

DRUGS (4)
  1. REMODULIN [Suspect]
     Active Substance: TREPROSTINIL
     Indication: Pulmonary arterial hypertension
     Dosage: UNK, CONTINUING
     Route: 058
     Dates: start: 20131017
  2. REMODULIN [Suspect]
     Active Substance: TREPROSTINIL
     Dosage: 0.114 ?G/KG APPROXIMATELY, CONTINUING
     Route: 058
  3. REMODULIN [Suspect]
     Active Substance: TREPROSTINIL
     Dosage: 0.114 ?G/KG, CONTINUING
     Route: 058
  4. TADALAFIL [Suspect]
     Active Substance: TADALAFIL
     Indication: Product used for unknown indication
     Dosage: UNK
     Route: 065

REACTIONS (21)
  - Bone cancer [Unknown]
  - Renal cancer [Unknown]
  - Neoplasm malignant [Unknown]
  - Chest pain [Unknown]
  - Nervousness [Unknown]
  - Nasopharyngitis [Unknown]
  - Cough [Unknown]
  - Scar [Unknown]
  - Drug withdrawal syndrome [Unknown]
  - Weight increased [Unknown]
  - Infusion site pain [Unknown]
  - Lymphadenopathy [Unknown]
  - Respiration abnormal [Unknown]
  - Asthenia [Unknown]
  - Headache [Unknown]
  - Infusion site erythema [Unknown]
  - Skin tightness [Unknown]
  - Joint swelling [Unknown]
  - Peripheral swelling [Unknown]
  - Anxiety [Unknown]
  - Heart rate increased [Recovered/Resolved]

NARRATIVE: CASE EVENT DATE: 20220315
